FAERS Safety Report 10436206 (Version 2)
Quarter: 2014Q3

REPORT INFORMATION
  Report Type: Spontaneous
  Country: FR (occurrence: FR)
  Receive Date: 20140908
  Receipt Date: 20140916
  Transmission Date: 20150326
  Serious: Yes (Hospitalization, Other)
  Sender: FDA-Public Use
  Company Number: FR-009507513-1409FRA001284

PATIENT
  Age: 68 Year
  Sex: Male

DRUGS (4)
  1. FLUOROURACIL ACCORD [Suspect]
     Active Substance: FLUOROURACIL
     Dosage: UNK
     Route: 042
     Dates: start: 20140721, end: 20140723
  2. OXALIPLATIN ACCORD [Suspect]
     Active Substance: OXALIPLATIN
     Dosage: UNK
     Route: 042
     Dates: start: 20140721, end: 20140721
  3. ADVAGRAF [Suspect]
     Active Substance: TACROLIMUS
     Dosage: 15 MG, QD
     Route: 048
     Dates: start: 2012
  4. EMEND [Suspect]
     Active Substance: APREPITANT
     Dosage: UNK
     Route: 048
     Dates: start: 20140721, end: 20140722

REACTIONS (4)
  - Disorientation [Recovered/Resolved]
  - Confusional state [Recovered/Resolved]
  - Nausea [Recovered/Resolved]
  - Encephalopathy [Recovered/Resolved]

NARRATIVE: CASE EVENT DATE: 20140723
